FAERS Safety Report 15607740 (Version 2)
Quarter: 2018Q4

REPORT INFORMATION
  Report Type: Spontaneous
  Country: GR (occurrence: GR)
  Receive Date: 20181112
  Receipt Date: 20181209
  Transmission Date: 20190205
  Serious: Yes (Death, Hospitalization)
  Sender: FDA-Public Use
  Company Number: GR-ABBVIE-18K-066-2552822-00

PATIENT
  Age: 86 Year
  Sex: Female

DRUGS (1)
  1. VENCLYXTO [Suspect]
     Active Substance: VENETOCLAX
     Indication: PRODUCT USED FOR UNKNOWN INDICATION
     Route: 048

REACTIONS (3)
  - Cytomegalovirus infection [Fatal]
  - Pneumonia [Unknown]
  - Neutropenia [Recovered/Resolved]
